FAERS Safety Report 6398160-9 (Version None)
Quarter: 2009Q4

REPORT INFORMATION
  Report Type: 
  Country: None (occurrence: None)
  Receive Date: 20091013
  Receipt Date: 20091007
  Transmission Date: 20100525
  Serious: Yes (Hospitalization)
  Sender: FDA-Public Use
  Company Number: TR-BRISTOL-MYERS SQUIBB COMPANY-14809982

PATIENT
  Age: 62 Year
  Sex: Female

DRUGS (5)
  1. CISPLATIN [Suspect]
     Indication: NON-SMALL CELL LUNG CANCER
     Dosage: LAST DOSE ON 25SEP09
     Route: 042
     Dates: start: 20090721
  2. ALIMTA [Suspect]
     Indication: NON-SMALL CELL LUNG CANCER
     Dosage: LAST DOSE ON 25SEP09
     Route: 042
     Dates: start: 20090721
  3. FOLIC ACID [Concomitant]
     Dates: start: 20090710
  4. VITAMIN B-12 [Concomitant]
     Dates: start: 20090710
  5. DEXAMETHASONE 0.5MG TAB [Concomitant]
     Dates: start: 20090710

REACTIONS (1)
  - HYPERTENSION [None]
